FAERS Safety Report 12314261 (Version 1)
Quarter: 2016Q2

REPORT INFORMATION
  Report Type: Spontaneous
  Country: US (occurrence: US)
  Receive Date: 20160428
  Receipt Date: 20160428
  Transmission Date: 20160815
  Serious: Yes (Hospitalization)
  Sender: FDA-Public Use
  Company Number: US-PFIZER INC-2016224243

PATIENT
  Age: 58 Year
  Sex: Male

DRUGS (2)
  1. KADIAN [Suspect]
     Active Substance: MORPHINE SULFATE
     Dosage: 100 MG, 1X/DAY (IN THE MORNING)
  2. EMBEDA [Suspect]
     Active Substance: MORPHINE SULFATE\NALTREXONE HYDROCHLORIDE
     Dosage: 50 MG, 1X/DAY (IN THE AFTERNOON)

REACTIONS (4)
  - Bradycardia [Unknown]
  - Paraesthesia [Unknown]
  - Abnormal behaviour [Unknown]
  - Hyperhidrosis [Unknown]
